FAERS Safety Report 4655648-6 (Version None)
Quarter: 2005Q2

REPORT INFORMATION
  Report Type: 
  Country: None (occurrence: None)
  Receive Date: 20050505
  Receipt Date: 20050422
  Transmission Date: 20051028
  Serious: Yes (Hospitalization, Other)
  Sender: FDA-Public Use
  Company Number: KII-2005-0016174

PATIENT
  Age: 47 Year
  Sex: Male

DRUGS (10)
  1. OXYCONTIN [Suspect]
     Dosage: 80 MG, ORAL
     Route: 048
  2. DOXEPIN HCL [Suspect]
     Dosage: 100 MG, SEE TEXT, ORAL
     Route: 048
  3. SSRI () [Suspect]
     Dosage: 150 MG, ORAL
     Route: 048
  4. BENZODIAZEPINES DERIVATIVES () [Suspect]
     Dosage: ORAL
     Route: 048
  5. ANTIDEPRESSANTS () [Suspect]
     Dosage: ORAL
     Route: 048
  6. ANTIPSYCHOTICS () [Suspect]
     Dosage: ORAL
     Route: 048
  7. ACETAMINOPHEN AND HYDROCODONE BITARTRATE [Suspect]
     Dosage: ORAL
     Route: 048
  8. VASODILATOR: (OTHER () [Suspect]
     Dosage: ORAL
     Route: 048
  9. SENNA (SENNA) [Suspect]
     Dosage: ORAL
     Route: 048
  10. OTHER HYPNOTICS AND SEDATIVES () [Suspect]
     Dosage: ORAL
     Route: 048

REACTIONS (14)
  - AGITATION [None]
  - AMMONIA DECREASED [None]
  - BLOOD GLUCOSE INCREASED [None]
  - BLOOD LACTIC ACID INCREASED [None]
  - BLOOD MAGNESIUM DECREASED [None]
  - BLOOD PH INCREASED [None]
  - BLOOD POTASSIUM DECREASED [None]
  - COMA [None]
  - ELECTROCARDIOGRAM QRS COMPLEX PROLONGED [None]
  - INTENTIONAL MISUSE [None]
  - LOSS OF CONSCIOUSNESS [None]
  - MULTIPLE DRUG OVERDOSE [None]
  - SUICIDE ATTEMPT [None]
  - TACHYCARDIA [None]
